FAERS Safety Report 6191242-6 (Version None)
Quarter: 2009Q2

REPORT INFORMATION
  Report Type: 
  Country: None (occurrence: None)
  Receive Date: 20090513
  Receipt Date: 20090513
  Transmission Date: 20091009
  Serious: Yes (Disabling)
  Sender: FDA-Public Use
  Company Number: None

PATIENT
  Sex: Female

DRUGS (1)
  1. SPIRIVA [Suspect]
     Indication: CHRONIC OBSTRUCTIVE PULMONARY DISEASE
     Dosage: SPRAY 1 X DAILY ORAL
     Route: 048
     Dates: start: 20080201, end: 20080301

REACTIONS (4)
  - EYE IRRITATION [None]
  - OCULAR HYPERAEMIA [None]
  - PURULENT DISCHARGE [None]
  - VISION BLURRED [None]
